FAERS Safety Report 21489070 (Version 1)
Quarter: 2022Q4

REPORT INFORMATION
  Report Type: Report from Study
  Country: US (occurrence: US)
  Receive Date: 20221021
  Receipt Date: 20221021
  Transmission Date: 20230113
  Serious: Yes (Other)
  Sender: FDA-Public Use
  Company Number: US-BRISTOL-MYERS SQUIBB COMPANY-2022-098350

PATIENT
  Age: 61 Year
  Sex: Male
  Weight: 96.62 kg

DRUGS (1)
  1. POMALYST [Suspect]
     Active Substance: POMALIDOMIDE
     Indication: Plasma cell myeloma
     Dosage: TAKE 1 CAPSULE DAILY ON DAYS 1 THROUGH 21 OF EACH 4 WEEK CYCLE WITHOUT REGARD TO MEALS.?SWALLOW WHOL
     Route: 048

REACTIONS (2)
  - Neuropathy peripheral [Unknown]
  - Nervous system disorder [Unknown]
